FAERS Safety Report 11873101 (Version 1)
Quarter: 2015Q4

REPORT INFORMATION
  Report Type: Spontaneous
  Country: US (occurrence: US)
  Receive Date: 20151228
  Receipt Date: 20151228
  Transmission Date: 20160305
  Serious: No
  Sender: FDA-Public Use
  Company Number: US-PFIZER INC-2015424597

PATIENT
  Sex: Female
  Weight: 63.5 kg

DRUGS (3)
  1. GENERIC EXCEDRIN [Concomitant]
     Indication: HEADACHE
     Dosage: [ACETAMINOPHEN 250MG]/[ASPIRIN 250MG]/[CAFFEINE 65MG] 2 DF, 2X/DAY
     Route: 048
  2. CHANTIX [Suspect]
     Active Substance: VARENICLINE TARTRATE
     Indication: SMOKING CESSATION THERAPY
  3. FLONASE [Concomitant]
     Active Substance: FLUTICASONE PROPIONATE
     Indication: SINUS DISORDER
     Dosage: 1 SPRAY IN EACH NOSTRIL AT NIGHT

REACTIONS (1)
  - Constipation [Unknown]
